FAERS Safety Report 8773570 (Version 1)
Quarter: 2012Q4

REPORT INFORMATION
  Report Type: 
  Country: DE (occurrence: DE)
  Receive Date: 20120907
  Receipt Date: 20120907
  Transmission Date: 20130627
  Serious: Yes (Other)
  Sender: FDA-Public Use
  Company Number: DE-GLAXOSMITHKLINE-D0076912A

PATIENT
  Sex: Male

DRUGS (6)
  1. REQUIP [Suspect]
     Indication: PARKINSON^S DISEASE
     Dosage: 12MG per day
     Route: 065
  2. AMANTADINE [Suspect]
     Dosage: 100MG Three times per day
     Route: 065
     Dates: end: 2012
  3. MADOPAR [Suspect]
     Route: 065
     Dates: end: 2012
  4. STALEVO [Concomitant]
     Dosage: 175MG Five times per day
     Route: 065
  5. LEVODOPA [Concomitant]
     Dosage: 250MG Per day
     Route: 065
  6. CITALOPRAM [Concomitant]
     Dosage: 15MG Per day
     Route: 065

REACTIONS (5)
  - Withdrawal syndrome [Unknown]
  - Condition aggravated [Unknown]
  - Hallucination [Unknown]
  - Confusional state [Unknown]
  - Parkinson^s disease [None]
